FAERS Safety Report 5118346-0 (Version None)
Quarter: 2006Q4

REPORT INFORMATION
  Report Type: 
  Country: None (occurrence: None)
  Receive Date: 20061002
  Receipt Date: 20060918
  Transmission Date: 20070319
  Serious: Yes (Hospitalization)
  Sender: FDA-Public Use
  Company Number: US-AMGEN-STX194005

PATIENT
  Sex: Female

DRUGS (1)
  1. ENBREL [Suspect]
     Indication: RHEUMATOID ARTHRITIS
     Route: 058
     Dates: start: 19961101

REACTIONS (7)
  - ABDOMINOPLASTY [None]
  - DEVICE RELATED INFECTION [None]
  - HERNIA [None]
  - HIP ARTHROPLASTY [None]
  - HIP SURGERY [None]
  - KNEE ARTHROPLASTY [None]
  - POSTOPERATIVE INFECTION [None]
